FAERS Safety Report 12542082 (Version 2)
Quarter: 2016Q3

REPORT INFORMATION
  Report Type: Spontaneous
  Country: US (occurrence: US)
  Receive Date: 20160708
  Receipt Date: 20160712
  Transmission Date: 20161109
  Serious: Yes (Hospitalization, Other)
  Sender: FDA-Public Use
  Company Number: US-ALLERGAN-1662183US

PATIENT
  Age: 72 Year
  Sex: Female

DRUGS (2)
  1. MESALAZINE UNK [Suspect]
     Active Substance: MESALAMINE
     Dosage: 800 MG, TID
     Route: 065
     Dates: end: 19970909
  2. MESALAZINE UNK [Suspect]
     Active Substance: MESALAMINE
     Indication: COLITIS ULCERATIVE
     Dosage: 800 MG, BID
     Route: 065
     Dates: start: 199706

REACTIONS (6)
  - Lung infiltration [Recovered/Resolved]
  - Pleurisy viral [Unknown]
  - Pneumonia [Recovered/Resolved]
  - Pleural effusion [Recovered/Resolved]
  - Atrial fibrillation [Unknown]
  - Pericardial effusion [Unknown]

NARRATIVE: CASE EVENT DATE: 19970803
